FAERS Safety Report 22648373 (Version 10)
Quarter: 2023Q4

REPORT INFORMATION
  Report Type: Spontaneous
  Country: US (occurrence: US)
  Receive Date: 20230628
  Receipt Date: 20231227
  Transmission Date: 20240110
  Serious: Yes (Hospitalization, Other)
  Sender: FDA-Public Use
  Company Number: US-BRISTOL-MYERS SQUIBB COMPANY-2023-090466

PATIENT
  Age: 77 Year
  Sex: Female

DRUGS (3)
  1. LENALIDOMIDE [Suspect]
     Active Substance: LENALIDOMIDE
     Indication: Plasma cell myeloma
     Dosage: TAKE 1 WHOLE CAPSULE BY MOUTH WITH WATER AT THE SAME TIME EVERY DAY ON DAYS 1-21 OF EACH 28 DAY CYCL
     Route: 048
     Dates: start: 20230426
  2. LENALIDOMIDE [Suspect]
     Active Substance: LENALIDOMIDE
     Dosage: TAKE 1 WHOLE CAPSULE BY MOUTH WITH WATER AT THE SAME TIME. TAKE 1 WHOLE CAPSULE BY MOUTH WITH WATER
     Route: 048
     Dates: start: 20230612
  3. LENALIDOMIDE [Suspect]
     Active Substance: LENALIDOMIDE
     Dosage: TAKE 1 CAPSULE (5MG) BY MOUTH WHOLE WITH WATER AT THE SAME TIME EACH DAY ON DAYS 1-21 OF EACH 28-DAY
     Route: 048

REACTIONS (15)
  - Urinary tract infection [Recovered/Resolved]
  - Renal disorder [Unknown]
  - Haemoglobin decreased [Recovering/Resolving]
  - Pyrexia [Unknown]
  - Skin warm [Unknown]
  - Pruritus [Unknown]
  - Skin exfoliation [Unknown]
  - Nausea [Not Recovered/Not Resolved]
  - Product supply issue [Unknown]
  - Diarrhoea [Not Recovered/Not Resolved]
  - Alopecia [Not Recovered/Not Resolved]
  - Trichorrhexis [Not Recovered/Not Resolved]
  - Muscle spasms [Not Recovered/Not Resolved]
  - Pneumonia [Recovering/Resolving]
  - Product dose omission issue [Unknown]

NARRATIVE: CASE EVENT DATE: 20230707
